FAERS Safety Report 11887908 (Version 1)
Quarter: 2016Q1

REPORT INFORMATION
  Report Type: Spontaneous
  Country: US (occurrence: None)
  Receive Date: 20160104
  Receipt Date: 20160104
  Transmission Date: 20160526
  Serious: Yes (Death)
  Sender: FDA-Public Use
  Company Number: None

PATIENT
  Age: 6 Year
  Sex: Male
  Weight: 23.13 kg

DRUGS (1)
  1. ZOFRAN [Suspect]
     Active Substance: ONDANSETRON HYDROCHLORIDE
     Indication: GASTROENTERITIS
     Dosage: TAKEN BY MOUTH
     Dates: start: 20150302, end: 20150303

REACTIONS (2)
  - Myocarditis [None]
  - Cardiac failure [None]

NARRATIVE: CASE EVENT DATE: 20150304
